FAERS Safety Report 24916287 (Version 1)
Quarter: 2025Q1

REPORT INFORMATION
  Report Type: Spontaneous
  Country: IN (occurrence: IN)
  Receive Date: 20250203
  Receipt Date: 20250203
  Transmission Date: 20250409
  Serious: Yes (Life-Threatening, Hospitalization, Other)
  Sender: PFIZER
  Company Number: IN-PFIZER INC-202500022173

PATIENT
  Age: 51 Year
  Sex: Male

DRUGS (6)
  1. PIPERACILLIN SODIUM\TAZOBACTAM SODIUM [Suspect]
     Active Substance: PIPERACILLIN SODIUM\TAZOBACTAM SODIUM
     Dosage: 2.25 G, 4X/DAY
     Route: 042
  2. DEXAMETHASONE [Suspect]
     Active Substance: DEXAMETHASONE
     Dosage: 8 MG, 3X/DAY
     Route: 042
  3. ACYCLOVIR [Suspect]
     Active Substance: ACYCLOVIR
     Dosage: 400 MG, 2X/DAY
     Route: 042
  4. FLUCONAZOLE [Suspect]
     Active Substance: FLUCONAZOLE
     Dosage: 150 MG, DAILY
  5. CLOTRIMAZOLE [Suspect]
     Active Substance: CLOTRIMAZOLE
  6. FUSIDIC ACID [Suspect]
     Active Substance: FUSIDIC ACID

REACTIONS (1)
  - Drug ineffective [Unknown]
